FAERS Safety Report 5363570-5 (Version None)
Quarter: 2007Q2

REPORT INFORMATION
  Report Type: 
  Country: None (occurrence: None)
  Receive Date: 20070620
  Receipt Date: 20070614
  Transmission Date: 20071010
  Serious: Yes (Other)
  Sender: FDA-Public Use
  Company Number: US-ASTRAZENECA-2007UW14262

PATIENT
  Age: 55 Year
  Sex: Male
  Weight: 99.8 kg

DRUGS (4)
  1. ENTOCORT EC [Suspect]
     Indication: COLITIS
     Route: 048
  2. LOTREL [Concomitant]
  3. ATENOLOL [Concomitant]
  4. PENTASA [Concomitant]

REACTIONS (1)
  - CATARACT [None]
